FAERS Safety Report 22028936 (Version 3)
Quarter: 2023Q4

REPORT INFORMATION
  Report Type: Report from Study
  Country: CA (occurrence: CA)
  Receive Date: 20230223
  Receipt Date: 20231214
  Transmission Date: 20240109
  Serious: Yes (Other)
  Sender: FDA-Public Use
  Company Number: CA-OTSUKA-2022_049980

PATIENT
  Age: 39 Year
  Sex: Female

DRUGS (4)
  1. TOLVAPTAN [Suspect]
     Active Substance: TOLVAPTAN
     Indication: Congenital cystic kidney disease
     Dosage: 1ST DOSE, AT 8.00
     Route: 048
     Dates: start: 202210
  2. TOLVAPTAN [Suspect]
     Active Substance: TOLVAPTAN
     Dosage: 2ND DOSE, 8 H LATER
     Route: 048
     Dates: start: 202210
  3. TOLVAPTAN [Suspect]
     Active Substance: TOLVAPTAN
     Dosage: 15 MG, OD
     Route: 065
  4. TOLVAPTAN [Suspect]
     Active Substance: TOLVAPTAN
     Dosage: UNK
     Route: 048
     Dates: start: 20220613

REACTIONS (14)
  - Erythema [Unknown]
  - Gout [Recovered/Resolved]
  - Feeling abnormal [Unknown]
  - Pain [Unknown]
  - Abdominal pain upper [Unknown]
  - Nausea [Unknown]
  - Dry mouth [Unknown]
  - Polydipsia [Unknown]
  - Nocturia [Unknown]
  - Decreased appetite [Unknown]
  - Dizziness [Unknown]
  - Thirst [Unknown]
  - Pollakiuria [Unknown]
  - Inappropriate schedule of product administration [Unknown]

NARRATIVE: CASE EVENT DATE: 20221001
